FAERS Safety Report 8979589 (Version 1)
Quarter: 2012Q4

REPORT INFORMATION
  Report Type: 
  Country: CA (occurrence: CA)
  Receive Date: 20121221
  Receipt Date: 20121221
  Transmission Date: 20130627
  Serious: Yes (Hospitalization)
  Sender: FDA-Public Use
  Company Number: CA-B.I. PHARMACEUTICALS,INC./RIDGEFIELD-2012-CN-02593CN

PATIENT
  Sex: Male

DRUGS (2)
  1. PRADAX [Suspect]
     Indication: CEREBROVASCULAR ACCIDENT PROPHYLAXIS
  2. PRADAX [Suspect]
     Indication: CARDIAC VALVE PROSTHESIS USER

REACTIONS (2)
  - Cerebral artery embolism [Not Recovered/Not Resolved]
  - Off label use [Unknown]
